FAERS Safety Report 7485946-2 (Version None)
Quarter: 2011Q2

REPORT INFORMATION
  Report Type: 
  Country: None (occurrence: None)
  Receive Date: 20110517
  Receipt Date: 20110217
  Transmission Date: 20111010
  Serious: Yes (Other)
  Sender: FDA-Public Use
  Company Number: JP-BAYER-2010-000088

PATIENT
  Age: 38 Year
  Sex: Female

DRUGS (11)
  1. LEFTOSE [Concomitant]
     Dosage: UNK
     Route: 048
     Dates: start: 20101122
  2. ANTITUSSIVES AND EXPECTORANTS, COMBINATIONS [Concomitant]
     Indication: PRODUCT USED FOR UNKNOWN INDICATION
     Route: 048
  3. MUCODYNE [Concomitant]
     Dosage: UNK
     Route: 048
     Dates: start: 20101122
  4. CINAL [ASCORBIC ACID,CALCIUM PANTOTHENATE] [Concomitant]
     Dosage: UNK
     Route: 048
     Dates: start: 20101122
  5. BROCIN [Concomitant]
     Dosage: UNK
     Route: 048
     Dates: start: 20101122
  6. TULOBUTEROL [Concomitant]
     Dosage: DAILY DOSE 2 MG
     Route: 062
     Dates: start: 20101122
  7. MUCOSOLATE [Concomitant]
     Dosage: UNK
     Route: 048
     Dates: start: 20101127
  8. LEFTOSE [Concomitant]
     Dosage: UNK
     Route: 048
     Dates: start: 20101225
  9. AVELOX [Suspect]
     Indication: PNEUMONIA MYCOPLASMAL
     Dosage: 400 MG, QD
     Route: 048
     Dates: start: 20101122, end: 20101122
  10. MUCOSOLATE [Concomitant]
     Dosage: UNK
     Route: 048
     Dates: start: 20101122
  11. MUCOSOLATE [Concomitant]
     Dosage: UNK
     Route: 048
     Dates: start: 20101127

REACTIONS (6)
  - DYSPNOEA [None]
  - RASH [None]
  - ANAPHYLACTOID REACTION [None]
  - URTICARIA [None]
  - TACHYPNOEA [None]
  - PRURITUS GENERALISED [None]
